FAERS Safety Report 6713027-1 (Version None)
Quarter: 2010Q2

REPORT INFORMATION
  Report Type: 
  Country: None (occurrence: None)
  Receive Date: 20100505
  Receipt Date: 20100505
  Transmission Date: 20101027
  Serious: Yes (Hospitalization)
  Sender: FDA-Public Use
  Company Number: None

PATIENT
  Sex: Male
  Weight: 64.8644 kg

DRUGS (11)
  1. BENDAMUSTINE 100MG VIAL [Suspect]
     Indication: SMALL CELL LUNG CANCER STAGE UNSPECIFIED
     Dosage: 120MG/M2 IV D1,2 Q21 DAY
     Route: 042
     Dates: start: 20100419, end: 20100421
  2. MS CONTIN [Concomitant]
  3. OXYCODONE HCL AND ACETAMINOPHEN [Concomitant]
  4. ZOLPIDEM [Concomitant]
  5. ROZEREM [Concomitant]
  6. SERTRALINE [Concomitant]
  7. ALOXI [Concomitant]
  8. BENADRYL [Concomitant]
  9. TYLENOL DECADRON PRE CHEMO [Concomitant]
  10. COMPAZINE [Concomitant]
  11. PHENERGAN [Concomitant]

REACTIONS (5)
  - HYPOPHAGIA [None]
  - LETHARGY [None]
  - NAUSEA [None]
  - NO THERAPEUTIC RESPONSE [None]
  - VOMITING [None]
